FAERS Safety Report 7216100-7 (Version None)
Quarter: 2011Q1

REPORT INFORMATION
  Report Type: 
  Country: None (occurrence: None)
  Receive Date: 20110107
  Receipt Date: 20101228
  Transmission Date: 20110831
  Serious: Yes (Other)
  Sender: FDA-Public Use
  Company Number: US-SANOFI-AVENTIS-2010SA078530

PATIENT
  Age: 60 Year
  Sex: Female

DRUGS (10)
  1. NEXIUM [Concomitant]
  2. FIORICET [Concomitant]
  3. HYDROCHLOROTHIAZIDE [Concomitant]
  4. CRESTOR [Concomitant]
  5. LYRICA [Concomitant]
  6. PREDNISONE [Concomitant]
  7. ASPIRIN [Suspect]
     Route: 048
  8. KAPIDEX [Concomitant]
  9. PLAVIX [Suspect]
     Indication: STENT PLACEMENT
     Route: 048
     Dates: start: 20040101
  10. TOPROL-XL [Concomitant]

REACTIONS (10)
  - RENAL ARTERY OCCLUSION [None]
  - BRONCHITIS [None]
  - HYPERTENSION [None]
  - FLUID RETENTION [None]
  - GASTROENTERITIS VIRAL [None]
  - DIARRHOEA [None]
  - RECTAL HAEMORRHAGE [None]
  - WEIGHT INCREASED [None]
  - TYPE 2 DIABETES MELLITUS [None]
  - MIGRAINE [None]
